FAERS Safety Report 8195767-3 (Version None)
Quarter: 2012Q1

REPORT INFORMATION
  Report Type: 
  Country: None (occurrence: None)
  Receive Date: 20120308
  Receipt Date: 20120301
  Transmission Date: 20120608
  Serious: Yes (Other)
  Sender: FDA-Public Use
  Company Number: US-BAYER-2012-021173

PATIENT
  Age: 45 Year
  Sex: Male

DRUGS (1)
  1. SORAFENIB (RAF KINASE INHIBITOR) [Suspect]
     Indication: HEPATIC NEOPLASM MALIGNANT

REACTIONS (4)
  - DYSURIA [None]
  - PAIN IN EXTREMITY [None]
  - HYPOAESTHESIA [None]
  - ABASIA [None]
